FAERS Safety Report 9856106 (Version 1)
Quarter: 2014Q1

REPORT INFORMATION
  Report Type: Spontaneous
  Country: US (occurrence: US)
  Receive Date: 20140130
  Receipt Date: 20140130
  Transmission Date: 20141002
  Serious: No
  Sender: FDA-Public Use
  Company Number: US-B.I. PHARMACEUTICALS,INC./RIDGEFIELD-2014-BI-02409PF

PATIENT
  Sex: Female

DRUGS (6)
  1. SPIRIVA [Suspect]
     Indication: DYSPNOEA
     Dosage: 18 MCG
  2. CIPROFLOXACIN [Concomitant]
     Indication: BLADDER CYST
     Dosage: 250 MG
  3. PROAIR HFA [Concomitant]
     Indication: DYSPNOEA
     Dosage: AS NEEDED
  4. NASONEX [Concomitant]
     Indication: DYSPNOEA
  5. PHENTERMINE [Concomitant]
     Indication: SUPPLEMENTATION THERAPY
     Dosage: 30 MG
  6. TOPIRAMATE [Concomitant]
     Indication: SUPPLEMENTATION THERAPY
     Dosage: 50 MG

REACTIONS (12)
  - Gastrooesophageal reflux disease [Unknown]
  - Hypertension [Unknown]
  - Bladder disorder [Unknown]
  - Pain in extremity [Unknown]
  - Pain [Unknown]
  - Depression [Unknown]
  - Diabetes mellitus [Unknown]
  - Blood cholesterol increased [Unknown]
  - Sleep disorder [Unknown]
  - Blood iron decreased [Unknown]
  - Constipation [Unknown]
  - Cough [Unknown]
